FAERS Safety Report 8373272-9 (Version None)
Quarter: 2012Q2

REPORT INFORMATION
  Report Type: 
  Country: None (occurrence: None)
  Receive Date: 20120521
  Receipt Date: 20120509
  Transmission Date: 20120825
  Serious: Yes (Hospitalization)
  Sender: FDA-Public Use
  Company Number: FR-SANOFI-AVENTIS-200911460FR

PATIENT
  Age: 53 Year
  Sex: Female

DRUGS (13)
  1. IMOVANE [Suspect]
     Dosage: DOSE:1 UNIT(S)
     Route: 048
  2. GLUCOPHAGE [Suspect]
     Dosage: DOSE UNIT: 850 MG
     Route: 048
     Dates: start: 20030316
  3. POTASSIUM CHLORIDE [Suspect]
     Route: 048
  4. FENOFIBRATE [Concomitant]
  5. XANAX [Suspect]
     Route: 048
  6. PENTOXIFYLLINE [Suspect]
     Dosage: DOSE UNIT: 20 MG
     Route: 048
  7. IRBESARTAN [Suspect]
     Route: 048
  8. MEDIATOR [Suspect]
     Dosage: DOSE UNIT: 150 MG
     Route: 048
     Dates: start: 20030316, end: 20050321
  9. LASIX [Suspect]
     Route: 065
  10. PRAVASTATIN [Suspect]
     Route: 048
  11. PAROXETINE HYDROCHLORIDE [Suspect]
     Indication: DEPRESSION
     Route: 048
     Dates: end: 20040101
  12. ACETAMINOPHEN W/ PROPOXYPHENE HCL [Suspect]
     Route: 048
  13. LACTULOSE [Suspect]
     Route: 048

REACTIONS (4)
  - CARDIAC VALVE DISEASE [None]
  - AORTIC VALVE INCOMPETENCE [None]
  - PULMONARY ARTERIAL HYPERTENSION [None]
  - MITRAL VALVE INCOMPETENCE [None]
